FAERS Safety Report 17146015 (Version 2)
Quarter: 2019Q4

REPORT INFORMATION
  Report Type: Spontaneous
  Country: US (occurrence: US)
  Receive Date: 20191212
  Receipt Date: 20191231
  Transmission Date: 20200122
  Serious: Yes (Hospitalization)
  Sender: FDA-Public Use
  Company Number: US-CELGENEUS-USA-20191202872

PATIENT
  Age: 74 Year
  Sex: Male
  Weight: 77.1 kg

DRUGS (37)
  1. ATORVASTATIN [Concomitant]
     Active Substance: ATORVASTATIN
     Indication: ANGINA PECTORIS
     Dosage: 40 MILLIGRAM
     Route: 048
     Dates: start: 20190911
  2. CHLORHEXIDINE [Concomitant]
     Active Substance: CHLORHEXIDINE
     Indication: INFECTION PROPHYLAXIS
     Dosage: 1 APPLICATORFULL
     Route: 061
     Dates: start: 20191007
  3. METOPROLOL TARTRATE. [Concomitant]
     Active Substance: METOPROLOL TARTRATE
     Indication: HYPERTENSION
     Dosage: 12.5-50 MG
     Route: 048
     Dates: start: 20191009, end: 20191019
  4. ALLOPURINOL. [Concomitant]
     Active Substance: ALLOPURINOL
     Indication: PROPHYLAXIS
     Dosage: 300 MILLIGRAM
     Route: 048
     Dates: start: 20191008, end: 20191014
  5. AZACITIDINE. [Suspect]
     Active Substance: AZACITIDINE
     Dosage: 75 MILLIGRAM/SQ. METER
     Route: 041
     Dates: start: 20191212
  6. VENETOCLAX. [Concomitant]
     Active Substance: VENETOCLAX
     Dosage: 400 MILLIGRAM
     Route: 048
     Dates: start: 20191014, end: 20191118
  7. FUROSEMIDE. [Concomitant]
     Active Substance: FUROSEMIDE
     Indication: ISCHAEMIC CARDIOMYOPATHY
  8. AUGMENTIN [Concomitant]
     Active Substance: AMOXICILLIN\CLAVULANATE POTASSIUM
     Indication: INFECTION PROPHYLAXIS
     Dosage: 100-62.5-25 UG
     Route: 048
     Dates: start: 20191007
  9. ENOXAPARIN [Concomitant]
     Active Substance: ENOXAPARIN
     Indication: THROMBOSIS PROPHYLAXIS
     Dosage: 40 MILLIGRAM
     Route: 058
     Dates: start: 20191008
  10. PROCHLORPERAZINE. [Concomitant]
     Active Substance: PROCHLORPERAZINE
     Indication: PROPHYLAXIS OF NAUSEA AND VOMITING
     Dosage: 5 MILLIGRAM
     Route: 041
     Dates: start: 20191009
  11. MELATONIN [Concomitant]
     Active Substance: MELATONIN
     Indication: INSOMNIA
     Dosage: 3 MILLIGRAM
     Route: 048
     Dates: start: 20191011
  12. NORMAL SALINE [Concomitant]
     Active Substance: SODIUM CHLORIDE
     Indication: PROPHYLAXIS
     Dosage: 110 MILLILITER
     Route: 041
     Dates: start: 20191008, end: 20191014
  13. NYSTATIN. [Concomitant]
     Active Substance: NYSTATIN
     Indication: INFECTION PROPHYLAXIS
     Dosage: 1000000 IU (INTERNATIONAL UNIT)
     Route: 065
     Dates: start: 20191028
  14. DOCUSATE SODIUM. [Concomitant]
     Active Substance: DOCUSATE SODIUM
     Indication: CONSTIPATION PROPHYLAXIS
     Dosage: 100 MILLIGRAM
     Route: 065
     Dates: start: 20170906
  15. VENETOCLAX. [Concomitant]
     Active Substance: VENETOCLAX
     Indication: MYELODYSPLASTIC SYNDROME
     Dosage: 200 MILLIGRAM
     Route: 048
     Dates: start: 20191008, end: 20191013
  16. VALPROATE SEMISODIUM [Concomitant]
     Active Substance: DIVALPROEX SODIUM
     Indication: DELIRIUM
     Dosage: 125 MILLIGRAM
     Route: 048
     Dates: start: 20191023
  17. ATORVASTATIN [Concomitant]
     Active Substance: ATORVASTATIN
     Indication: ISCHAEMIC CARDIOMYOPATHY
  18. LOSARTAN. [Concomitant]
     Active Substance: LOSARTAN
     Indication: HYPERTENSION
     Dosage: 50 MILLIGRAM
     Route: 048
     Dates: start: 20190911
  19. LOSARTAN. [Concomitant]
     Active Substance: LOSARTAN
     Indication: ISCHAEMIC CARDIOMYOPATHY
  20. TAMSULOSIN [Concomitant]
     Active Substance: TAMSULOSIN
     Indication: PROSTATIC HYPOPLASIA
     Dosage: .4 MILLIGRAM
     Route: 048
     Dates: start: 20190911
  21. AUGMENTIN [Concomitant]
     Active Substance: AMOXICILLIN\CLAVULANATE POTASSIUM
     Indication: DIARRHOEA
  22. METOPROLOL TARTRATE. [Concomitant]
     Active Substance: METOPROLOL TARTRATE
     Indication: CORONARY ARTERY DISEASE
     Dosage: 25-50 MG
     Route: 041
     Dates: start: 20191022
  23. ASPIRIN. [Concomitant]
     Active Substance: ASPIRIN
     Indication: ISCHAEMIC CARDIOMYOPATHY
     Dosage: 81 MILLIGRAM
     Route: 048
     Dates: start: 20190911
  24. FUROSEMIDE. [Concomitant]
     Active Substance: FUROSEMIDE
     Indication: HYPERTENSION
     Dosage: 20 MILLIGRAM
     Route: 048
     Dates: start: 20190911
  25. CHLORHEXIDINE [Concomitant]
     Active Substance: CHLORHEXIDINE
     Indication: INFECTION PROPHYLAXIS
     Dosage: 10 MILLILITER
     Route: 061
     Dates: start: 20191028
  26. VENETOCLAX. [Concomitant]
     Active Substance: VENETOCLAX
     Dosage: 400 MILLIGRAM
     Route: 048
     Dates: start: 20191212
  27. FUROSEMIDE. [Concomitant]
     Active Substance: FUROSEMIDE
     Indication: OEDEMA
     Dosage: 40 MILLIGRAM
     Route: 041
     Dates: start: 20191011, end: 20191011
  28. MAGNESIUM OXIDE. [Concomitant]
     Active Substance: MAGNESIUM OXIDE
     Indication: PROPHYLAXIS
     Dosage: 400 MILLIGRAM
     Route: 048
     Dates: start: 20190911
  29. PARACETAMOL [Concomitant]
     Active Substance: ACETAMINOPHEN
     Indication: PAIN PROPHYLAXIS
     Dosage: 325 MILLIGRAM
     Route: 048
     Dates: start: 20170906
  30. ATORVASTATIN [Concomitant]
     Active Substance: ATORVASTATIN
     Indication: CORONARY ARTERY DISEASE
  31. POTASSIUM CHLORIDE. [Concomitant]
     Active Substance: POTASSIUM CHLORIDE
     Indication: HYPOVITAMINOSIS
     Dosage: 10 MILLIEQUIVALENTS
     Route: 048
     Dates: start: 20190911
  32. TRAMADOL. [Concomitant]
     Active Substance: TRAMADOL
     Indication: BACK PAIN
     Route: 048
     Dates: start: 20170906
  33. AZACITIDINE. [Suspect]
     Active Substance: AZACITIDINE
     Indication: MYELODYSPLASTIC SYNDROME
     Dosage: 75 MILLIGRAM/SQ. METER
     Route: 041
     Dates: start: 20191008, end: 20191111
  34. ALBUTEROL. [Concomitant]
     Active Substance: ALBUTEROL
     Indication: CHRONIC OBSTRUCTIVE PULMONARY DISEASE
     Dosage: 90 MICROGRAM
     Route: 055
     Dates: start: 20190911
  35. TRELEGY ELLIPTA [Concomitant]
     Active Substance: FLUTICASONE FUROATE\UMECLIDINIUM BROMIDE\VILANTEROL TRIFENATATE
     Indication: CHRONIC OBSTRUCTIVE PULMONARY DISEASE
     Dosage: 100-62.5-25 UG
     Route: 055
     Dates: start: 20190820
  36. METOPROLOL TARTRATE. [Concomitant]
     Active Substance: METOPROLOL TARTRATE
     Indication: ATRIAL FIBRILLATION
     Dosage: 5 MILLIGRAM
     Route: 041
     Dates: start: 20191016, end: 20191016
  37. SENNOSIDE A+B [Concomitant]
     Active Substance: SENNOSIDES A AND B
     Indication: CONSTIPATION PROPHYLAXIS
     Dosage: 2 TABLET
     Route: 048
     Dates: start: 20191006

REACTIONS (1)
  - Tachyarrhythmia [Not Recovered/Not Resolved]

NARRATIVE: CASE EVENT DATE: 20191127
